FAERS Safety Report 23452652 (Version 1)
Quarter: 2024Q1

REPORT INFORMATION
  Report Type: Spontaneous
  Country: US (occurrence: US)
  Receive Date: 20240129
  Receipt Date: 20240129
  Transmission Date: 20240410
  Serious: No
  Sender: FDA-Public Use
  Company Number: US-ALKERMES INC.-ALK-2024-000098

PATIENT
  Age: 17 Year
  Sex: Female

DRUGS (1)
  1. LYBALVI [Suspect]
     Active Substance: OLANZAPINE\SAMIDORPHAN L-MALATE
     Indication: Autism spectrum disorder
     Dosage: UNK MILLIGRAM, QD
     Route: 048

REACTIONS (1)
  - Off label use [Not Recovered/Not Resolved]
